FAERS Safety Report 12202528 (Version 1)
Quarter: 2016Q1

REPORT INFORMATION
  Report Type: Report from Study
  Country: US (occurrence: US)
  Receive Date: 20160322
  Receipt Date: 20160322
  Transmission Date: 20160526
  Serious: No
  Sender: FDA-Public Use
  Company Number: GXBR2016US000536

PATIENT
  Age: 62 Year
  Sex: Female

DRUGS (1)
  1. GLATOPA [Suspect]
     Active Substance: GLATIRAMER ACETATE
     Indication: PRODUCT USED FOR UNKNOWN INDICATION
     Dosage: 20 MG, QD
     Route: 065
     Dates: start: 201506

REACTIONS (4)
  - Hypoaesthesia [Recovered/Resolved]
  - Heart rate increased [Unknown]
  - Blood pressure increased [Unknown]
  - Stress [Unknown]

NARRATIVE: CASE EVENT DATE: 20160115
